FAERS Safety Report 18158116 (Version 8)
Quarter: 2021Q4

REPORT INFORMATION
  Report Type: Spontaneous
  Country: US (occurrence: US)
  Receive Date: 20200817
  Receipt Date: 20211007
  Transmission Date: 20220303
  Serious: No
  Sender: FDA-Public Use
  Company Number: US-GSKCCFUS-CASE-00779906_AE-45530

PATIENT
  Age: 66 Year
  Sex: Female

DRUGS (11)
  1. ZEJULA [Suspect]
     Active Substance: NIRAPARIB
     Indication: Lymphoedema
     Dosage: 200 MG, QD
     Dates: start: 20200802
  2. ZEJULA [Suspect]
     Active Substance: NIRAPARIB
     Indication: Breast cancer female
     Dosage: 200 MG, QD
  3. ZEJULA [Suspect]
     Active Substance: NIRAPARIB
     Dosage: 100 MG, QD
     Dates: start: 20200803
  4. ZEJULA [Suspect]
     Active Substance: NIRAPARIB
     Dosage: 100 MG, QD
  5. ZEJULA [Suspect]
     Active Substance: NIRAPARIB
     Dosage: 100 MG, QD
  6. ZEJULA [Suspect]
     Active Substance: NIRAPARIB
     Dosage: 100 MG, QD
  7. ZEJULA [Suspect]
     Active Substance: NIRAPARIB
     Dosage: 100 MG, QD
     Dates: end: 20210222
  8. ZEJULA [Suspect]
     Active Substance: NIRAPARIB
     Dosage: 100 MG, QD
     Dates: start: 20210224
  9. ZEJULA [Suspect]
     Active Substance: NIRAPARIB
     Dosage: 100 MG, QD
  10. ZEJULA [Suspect]
     Active Substance: NIRAPARIB
     Dosage: 100 MG, QD
     Route: 048
  11. ZEJULA [Suspect]
     Active Substance: NIRAPARIB
     Dosage: 100 MG,QD
     Dates: start: 20210927

REACTIONS (13)
  - Tremor [Recovered/Resolved]
  - Chills [Recovered/Resolved]
  - Back pain [Recovered/Resolved]
  - Nausea [Recovered/Resolved]
  - Diarrhoea [Recovered/Resolved]
  - Blood magnesium decreased [Unknown]
  - Decreased activity [Unknown]
  - White blood cell count increased [Unknown]
  - Platelet count decreased [Unknown]
  - COVID-19 [Unknown]
  - Off label use [Unknown]
  - Product use in unapproved indication [Unknown]
  - Product dose omission issue [Unknown]

NARRATIVE: CASE EVENT DATE: 20200824
